FAERS Safety Report 8984209 (Version 3)
Quarter: 2014Q1

REPORT INFORMATION
  Report Type: Report from Study
  Country: CA (occurrence: CA)
  Receive Date: 20121226
  Receipt Date: 20140101
  Transmission Date: 20141002
  Serious: Yes (Other)
  Sender: FDA-Public Use
  Company Number: PHHY2012CA116361

PATIENT
  Sex: Male

DRUGS (3)
  1. AFINITOR [Suspect]
     Indication: NEUROENDOCRINE CARCINOMA METASTATIC
     Dosage: 10 MG, QID
     Route: 048
     Dates: start: 20120829
  2. AFINITOR [Suspect]
     Dosage: 10 MG
     Dates: start: 201211
  3. SANDOSTATIN LAR [Suspect]
     Indication: NEUROENDOCRINE CARCINOMA METASTATIC
     Dosage: 50 MG EVERY 4 WEEKS
     Route: 030

REACTIONS (7)
  - Asthma [Unknown]
  - Needle issue [Unknown]
  - Respiratory disorder [Unknown]
  - Depression [Unknown]
  - Fatigue [Unknown]
  - Headache [Unknown]
  - Acne [Unknown]
